FAERS Safety Report 23340120 (Version 1)
Quarter: 2023Q4

REPORT INFORMATION
  Report Type: Spontaneous
  Country: TR (occurrence: TR)
  Receive Date: 20231227
  Receipt Date: 20231227
  Transmission Date: 20240109
  Serious: Yes (Death)
  Sender: FDA-Public Use
  Company Number: TR-ABBVIE-5556024

PATIENT
  Age: 20 Year
  Sex: Female

DRUGS (1)
  1. SEVOFLURANE [Suspect]
     Active Substance: SEVOFLURANE
     Indication: Suicidal ideation
     Route: 048

REACTIONS (4)
  - Completed suicide [Fatal]
  - Incorrect route of product administration [Fatal]
  - Poisoning deliberate [Fatal]
  - Overdose [Fatal]
